FAERS Safety Report 15410054 (Version 1)
Quarter: 2018Q4

REPORT INFORMATION
  Report Type: Spontaneous
  Country: DE (occurrence: DE)
  Receive Date: 20180921
  Receipt Date: 20180921
  Transmission Date: 20190204
  Serious: Yes (Hospitalization, Other)
  Sender: FDA-Public Use
  Company Number: DE-AUROBINDO-AUR-APL-2017-45449

PATIENT
  Age: 50 Year
  Sex: Male
  Weight: 87 kg

DRUGS (19)
  1. OXALIPLATIN. [Suspect]
     Active Substance: OXALIPLATIN
     Dosage: ()
     Route: 042
     Dates: start: 20160613
  2. OXALIPLATIN. [Suspect]
     Active Substance: OXALIPLATIN
     Route: 042
     Dates: start: 20160412, end: 20160412
  3. XELODA [Suspect]
     Active Substance: CAPECITABINE
     Dosage: 49000 MILLIGRAM
     Route: 048
     Dates: start: 20160412
  4. AVASTIN [Suspect]
     Active Substance: BEVACIZUMAB
     Indication: COLORECTAL CANCER
     Dosage: 742.5 MG 3 PER WEEK
     Route: 042
     Dates: start: 20160818, end: 20160818
  5. OXALIPLATIN. [Suspect]
     Active Substance: OXALIPLATIN
     Dosage: DAILY DOSE: 135.2 MG MILLGRAM(S) EVERY 3 WEEKS
     Route: 042
     Dates: start: 20160523
  6. AVASTIN [Suspect]
     Active Substance: BEVACIZUMAB
     Dosage: LAST MOST RECENT DOSE PRIOR TO SAE WAS ON : 22/MAR/2016
     Route: 042
     Dates: start: 20160209, end: 20160209
  7. OXALIPLATIN. [Suspect]
     Active Substance: OXALIPLATIN
     Indication: COLORECTAL CANCER
     Dosage: DAILY DOSE: 262.6 MG MILLGRAM(S) EVERY 3 WEEKS
     Route: 042
     Dates: start: 20160301, end: 20160301
  8. OXALIPLATIN. [Suspect]
     Active Substance: OXALIPLATIN
     Dosage: DAILY DOSE: 262.6 MG MILLGRAM(S) EVERY 3 WEEKS
     Route: 042
     Dates: start: 20160322, end: 20160322
  9. OXALIPLATIN. [Suspect]
     Active Substance: OXALIPLATIN
     Dosage: DAILY DOSE: 262.6 MG MILLGRAM(S) EVERY 3 WEEKS
     Route: 042
     Dates: start: 20160209
  10. AVASTIN [Suspect]
     Active Substance: BEVACIZUMAB
     Dosage: 645 MILLIGRAM, 3 WEEK
     Route: 042
     Dates: start: 20160412, end: 20160412
  11. XELODA [Suspect]
     Active Substance: CAPECITABINE
     Indication: COLORECTAL CANCER
     Dosage: 54000 MILLIGRAM (PER DAY FOR 14 DAYS FOLLOWED BY A BREAK OF 7 DAYS.)
     Route: 048
     Dates: start: 20160209
  12. XELODA [Suspect]
     Active Substance: CAPECITABINE
     Dosage: PER DAY FOR 14 DAYS FOLLOWED BY A BREAK OF 7 DAYS.
     Route: 048
     Dates: start: 20160322
  13. TILIDIN [Concomitant]
     Active Substance: NALOXONE HYDROCHLORIDE\TILIDINE HYDROCHLORIDE
     Indication: PRODUCT USED FOR UNKNOWN INDICATION
     Dosage: UNK
  14. OXALIPLATIN. [Suspect]
     Active Substance: OXALIPLATIN
     Dosage: DAILY DOSE: 210.08 MG MILLGRAM(S) EVERY 3 WEEKS
     Route: 042
     Dates: start: 20160412
  15. XELODA [Suspect]
     Active Substance: CAPECITABINE
     Dosage: 6000 MILLIGRAM
     Route: 048
     Dates: start: 20160613
  16. XELODA [Suspect]
     Active Substance: CAPECITABINE
     Dosage: 4000 MILLIGRAM (D1-14 FOLLOWED BY 7D PAUSE)
     Route: 048
     Dates: start: 20160523
  17. XELODA [Suspect]
     Active Substance: CAPECITABINE
     Dosage: 56000 MILLIGRAM
     Route: 048
     Dates: start: 20160301
  18. OXALIPLATIN. [Suspect]
     Active Substance: OXALIPLATIN
     Route: 042
     Dates: start: 20160209, end: 20160209
  19. AVASTIN [Suspect]
     Active Substance: BEVACIZUMAB
     Dosage: 1, 3 PER WEEK
     Route: 042
     Dates: start: 20160412

REACTIONS (6)
  - Myalgia [Recovered/Resolved]
  - Anaemia [Not Recovered/Not Resolved]
  - Stoma site haemorrhage [Not Recovered/Not Resolved]
  - Nausea [Recovered/Resolved]
  - Fatigue [Recovered/Resolved]
  - Dyspnoea exertional [Recovered/Resolved]

NARRATIVE: CASE EVENT DATE: 20160210
